FAERS Safety Report 4630864-8 (Version None)
Quarter: 2005Q2

REPORT INFORMATION
  Report Type: 
  Country: None (occurrence: None)
  Receive Date: 20050404
  Receipt Date: 20050404
  Transmission Date: 20051028
  Serious: Yes (Hospitalization)
  Sender: FDA-Public Use
  Company Number: None

PATIENT
  Sex: Male
  Weight: 72.1219 kg

DRUGS (3)
  1. GEMCITABINE (LILLY MANUFACTURER) [Suspect]
     Indication: PANCREATIC CARCINOMA
     Dosage: 1000 MG/M2 (042)
     Dates: start: 20050105
  2. GEMCITABINE (LILLY MANUFACTURER) [Suspect]
     Indication: PANCREATIC CARCINOMA
     Dosage: 1000 MG/M2 (042)
     Dates: start: 20050119
  3. GEMCITABINE (LILLY MANUFACTURER) [Suspect]
     Indication: PANCREATIC CARCINOMA
     Dosage: 1000 MG/M2 (042)
     Dates: start: 20050126

REACTIONS (3)
  - CARDIAC FAILURE CONGESTIVE [None]
  - PNEUMONIA [None]
  - URINARY TRACT INFECTION [None]
